FAERS Safety Report 21297505 (Version 2)
Quarter: 2023Q1

REPORT INFORMATION
  Report Type: Spontaneous
  Country: US (occurrence: US)
  Receive Date: 20220906
  Receipt Date: 20230301
  Transmission Date: 20230418
  Serious: Yes (Other)
  Sender: FDA-Public Use
  Company Number: US-SA-2022SA366749

PATIENT
  Age: 46 Year
  Sex: Male

DRUGS (1)
  1. ELOCTATE [Suspect]
     Active Substance: EFMOROCTOCOG ALFA
     Dosage: 3648 U, PRN
     Route: 065

REACTIONS (3)
  - Traumatic haemorrhage [Unknown]
  - Haemorrhage [Unknown]
  - Epistaxis [Unknown]

NARRATIVE: CASE EVENT DATE: 20220831
